FAERS Safety Report 8542400-4 (Version None)
Quarter: 2012Q3

REPORT INFORMATION
  Report Type: 
  Country: None (occurrence: None)
  Receive Date: 20120726
  Receipt Date: 20111018
  Transmission Date: 20120928
  Serious: Yes (Other)
  Sender: FDA-Public Use
  Company Number: US-ASTRAZENECA-2011SE62608

PATIENT
  Age: 46 Year
  Sex: Female
  Weight: 90.7 kg

DRUGS (6)
  1. SEROQUEL XR [Suspect]
     Indication: SCHIZOPHRENIA
     Dosage: 400 MG AT NIGHT AND 200 MG MIDDAY
     Route: 048
     Dates: end: 20110801
  2. DEFACOTE [Concomitant]
  3. NEURONTIN [Concomitant]
  4. CELEXA [Concomitant]
  5. SEROQUEL XR [Suspect]
     Indication: BIPOLAR DISORDER
     Dosage: 400 MG AT NIGHT AND 200 MG MIDDAY
     Route: 048
     Dates: end: 20110801
  6. ENALAPRIL MALEATE [Concomitant]
     Dosage: 5/12/5 MG ONCE A DAY

REACTIONS (7)
  - NERVOUSNESS [None]
  - PARKINSON'S DISEASE [None]
  - MULTIPLE SCLEROSIS [None]
  - CONVULSION [None]
  - FEELING ABNORMAL [None]
  - MENTAL DISORDER [None]
  - DRUG DOSE OMISSION [None]
